FAERS Safety Report 23890465 (Version 2)
Quarter: 2024Q2

REPORT INFORMATION
  Report Type: Report from Study
  Country: JP (occurrence: None)
  Receive Date: 20240523
  Receipt Date: 20240624
  Transmission Date: 20240715
  Serious: Yes (Death, Hospitalization)
  Sender: FDA-Public Use
  Company Number: 2023A133182

PATIENT
  Age: 84 Year
  Sex: Male
  Weight: 66 kg

DRUGS (2)
  1. IMFINZI [Suspect]
     Active Substance: DURVALUMAB
     Indication: Hepatocellular carcinoma
     Dosage: 1500.0MG UNKNOWN
     Route: 042
     Dates: start: 20230510, end: 20230510
  2. IMJUDO [Suspect]
     Active Substance: TREMELIMUMAB\TREMELIMUMAB-ACTL
     Indication: Hepatocellular carcinoma
     Dosage: 300.0MG UNKNOWN
     Route: 042
     Dates: start: 20230510, end: 20230510

REACTIONS (3)
  - Immune-mediated hepatic disorder [Recovering/Resolving]
  - Cellulitis [Fatal]
  - Sepsis [Fatal]

NARRATIVE: CASE EVENT DATE: 20230607
